FAERS Safety Report 21299805 (Version 1)
Quarter: 2022Q3

REPORT INFORMATION
  Report Type: Spontaneous
  Country: IN (occurrence: IN)
  Receive Date: 20220906
  Receipt Date: 20220906
  Transmission Date: 20221026
  Serious: Yes (Death)
  Sender: FDA-Public Use
  Company Number: IN-PFIZER INC-2021442240

PATIENT
  Age: 50 Year
  Sex: Female

DRUGS (4)
  1. PALBOCICLIB [Suspect]
     Active Substance: PALBOCICLIB
     Indication: Breast cancer metastatic
     Dosage: 125 MG, 1 OD (X21DAYS, THEN 1 WEEK OFF), 3 CYCLICS
     Route: 048
  2. PALBOCICLIB [Suspect]
     Active Substance: PALBOCICLIB
     Dosage: 125 MG, 1X/DAY
     Route: 048
     Dates: start: 20181116
  3. FULVESTRANT [Concomitant]
     Active Substance: FULVESTRANT
     Indication: Breast cancer metastatic
     Dosage: 500 MG, 1 M(DAY 1 OF EACH MONTH)X 21 DAYS THEN 1 WEEK OFF, 3 CYCLIC
  4. FULVESTRANT [Concomitant]
     Active Substance: FULVESTRANT
     Dosage: 500 MG
     Route: 030

REACTIONS (2)
  - Death [Fatal]
  - Off label use [Unknown]
